FAERS Safety Report 9193487 (Version 1)
Quarter: 2013Q1

REPORT INFORMATION
  Report Type: Spontaneous
  Country: ES (occurrence: ES)
  Receive Date: 20130327
  Receipt Date: 20130327
  Transmission Date: 20140127
  Serious: Yes (Other)
  Sender: FDA-Public Use
  Company Number: ES-ROXANE LABORATORIES, INC.-2013-RO-00419RO

PATIENT
  Age: 83 Year
  Sex: Female

DRUGS (1)
  1. VALACYCLOVIR HYDROCHLORIDE [Suspect]
     Indication: HERPES ZOSTER
     Dosage: 2 G
     Route: 048

REACTIONS (1)
  - Neurotoxicity [Recovered/Resolved]
